FAERS Safety Report 7349505-4 (Version None)
Quarter: 2011Q1

REPORT INFORMATION
  Report Type: 
  Country: None (occurrence: None)
  Receive Date: 20110314
  Receipt Date: 20100908
  Transmission Date: 20110831
  Serious: No
  Sender: FDA-Public Use
  Company Number: A0880295A

PATIENT
  Age: 17 Month
  Sex: Female

DRUGS (2)
  1. AMOXICILLIN AND CLAVULANATE POTASSIUM [Suspect]
     Indication: SINUSITIS
     Dosage: 2.5ML TWICE PER DAY
     Route: 048
     Dates: start: 20100819
  2. TYLENOL [Concomitant]

REACTIONS (1)
  - RASH GENERALISED [None]
